FAERS Safety Report 21057325 (Version 3)
Quarter: 2022Q3

REPORT INFORMATION
  Report Type: Other
  Country: US (occurrence: None)
  Receive Date: 20220708
  Receipt Date: 20220816
  Transmission Date: 20221027
  Serious: Yes (Other)
  Sender: FDA-Public Use
  Company Number: US-ROCHE-2494849

PATIENT
  Age: 65 Year
  Sex: Female
  Weight: 118.04 kg

DRUGS (6)
  1. OCREVUS [Suspect]
     Active Substance: OCRELIZUMAB
     Indication: Relapsing multiple sclerosis
     Route: 042
     Dates: start: 20180521, end: 20180604
  2. OCREVUS [Suspect]
     Active Substance: OCRELIZUMAB
     Indication: Multiple sclerosis
     Dosage: MOST RECENT DOSES OF OCRELIZUMAB: 03/JUN/2019, 03/DEC/2019, DATE OF TREATMENT :03/MAR/2018, 03/DEC/2
     Route: 042
     Dates: start: 20181203
  3. DULOXETINE [Concomitant]
     Active Substance: DULOXETINE
     Route: 065
  4. CALCIUM [Concomitant]
     Active Substance: CALCIUM
     Route: 065
  5. BACLOFEN [Concomitant]
     Active Substance: BACLOFEN
     Route: 065
  6. VITAMIN B12 [Concomitant]
     Active Substance: CYANOCOBALAMIN
     Route: 065

REACTIONS (8)
  - Sinusitis bacterial [Recovering/Resolving]
  - Therapeutic product effect decreased [Unknown]
  - COVID-19 [Unknown]
  - Cough [Recovered/Resolved]
  - Swelling [Recovering/Resolving]
  - Gait disturbance [Recovering/Resolving]
  - Arthralgia [Recovering/Resolving]
  - Nausea [Unknown]

NARRATIVE: CASE EVENT DATE: 20220517
